FAERS Safety Report 9921315 (Version 1)
Quarter: 2014Q1

REPORT INFORMATION
  Report Type: Spontaneous
  Country: US (occurrence: None)
  Receive Date: 20140221
  Receipt Date: 20140221
  Transmission Date: 20141002
  Serious: Yes (Life-Threatening, Hospitalization)
  Sender: FDA-Public Use
  Company Number: None

PATIENT
  Age: 63 Year
  Sex: Female
  Weight: 56.7 kg

DRUGS (1)
  1. DULOXETINE [Suspect]
     Route: 048
     Dates: start: 20140112, end: 20140119

REACTIONS (17)
  - Headache [None]
  - Tendon pain [None]
  - Arthralgia [None]
  - Sleep disorder [None]
  - Sinus tachycardia [None]
  - Palpitations [None]
  - Hypertension [None]
  - Vertigo [None]
  - Tremor [None]
  - Feeling abnormal [None]
  - Lethargy [None]
  - Somnolence [None]
  - Dyskinesia [None]
  - Dry mouth [None]
  - Blood glucose increased [None]
  - Fatigue [None]
  - Product substitution issue [None]
